FAERS Safety Report 9134298 (Version 1)
Quarter: 2013Q1

REPORT INFORMATION
  Report Type: Spontaneous
  Country: US (occurrence: US)
  Receive Date: 20130304
  Receipt Date: 20130304
  Transmission Date: 20140127
  Serious: No
  Sender: FDA-Public Use
  Company Number: US-JNJFOC-20130107382

PATIENT
  Age: 22 Year
  Sex: Female

DRUGS (2)
  1. INVEGA SUSTENNA [Suspect]
     Indication: SCHIZOPHRENIA
     Route: 030
     Dates: start: 201109
  2. COGENTIN [Concomitant]
     Route: 048

REACTIONS (2)
  - Hyperprolactinaemia [Unknown]
  - Menstruation irregular [Unknown]
